FAERS Safety Report 6134746-4 (Version None)
Quarter: 2009Q1

REPORT INFORMATION
  Report Type: 
  Country: None (occurrence: None)
  Receive Date: 20090327
  Receipt Date: 20090320
  Transmission Date: 20090719
  Serious: Yes (Death, Hospitalization)
  Sender: FDA-Public Use
  Company Number: US-ROCHE-619780

PATIENT
  Sex: Female
  Weight: 108.9 kg

DRUGS (1)
  1. CAPECITABINE [Suspect]
     Indication: COLORECTAL CANCER
     Dosage: 6 TABS DAILY
     Route: 048
     Dates: start: 20090211, end: 20090306

REACTIONS (2)
  - DEATH [None]
  - DIARRHOEA [None]
